FAERS Safety Report 9797054 (Version 1)
Quarter: 2014Q1

REPORT INFORMATION
  Report Type: Spontaneous
  Country: US (occurrence: US)
  Receive Date: 20140105
  Receipt Date: 20140105
  Transmission Date: 20141002
  Serious: Yes (Hospitalization)
  Sender: FDA-Public Use
  Company Number: US-MYLANLABS-2013S1028944

PATIENT
  Age: 21 Year
  Sex: Male

DRUGS (1)
  1. IBUPROFEN [Suspect]
     Indication: SUICIDE ATTEMPT
     Dosage: 600MG PILLS; PREDICTED AMOUNT APPROXIMATELY 18G
     Route: 048

REACTIONS (4)
  - Thrombotic thrombocytopenic purpura [Recovered/Resolved]
  - Intentional overdose [Recovered/Resolved]
  - Suicide attempt [Recovered/Resolved]
  - Transaminases increased [Recovered/Resolved]
